FAERS Safety Report 8021624-9 (Version None)
Quarter: 2012Q1

REPORT INFORMATION
  Report Type: 
  Country: None (occurrence: None)
  Receive Date: 20120104
  Receipt Date: 20120104
  Transmission Date: 20120608
  Serious: Yes (Hospitalization)
  Sender: FDA-Public Use
  Company Number: None

PATIENT
  Age: 31 Year
  Sex: Female
  Weight: 61.688 kg

DRUGS (1)
  1. GEODON [Suspect]
     Indication: HALLUCINATION
     Dosage: 20MG
     Route: 030
     Dates: start: 20111229, end: 20111229

REACTIONS (5)
  - DEPRESSED LEVEL OF CONSCIOUSNESS [None]
  - CARDIO-RESPIRATORY ARREST [None]
  - RESPIRATORY FAILURE [None]
  - UNRESPONSIVE TO STIMULI [None]
  - NEUROLEPTIC MALIGNANT SYNDROME [None]
